FAERS Safety Report 13265142 (Version 1)
Quarter: 2017Q1

REPORT INFORMATION
  Report Type: Spontaneous
  Country: US (occurrence: US)
  Receive Date: 20170223
  Receipt Date: 20170223
  Transmission Date: 20170428
  Serious: No
  Sender: FDA-Public Use
  Company Number: US-PURDUE-USA-2017-0135901

PATIENT
  Sex: Male

DRUGS (2)
  1. HYSINGLA ER [Suspect]
     Active Substance: HYDROCODONE BITARTRATE
     Indication: ANALGESIC THERAPY
     Dosage: 40 MG, DAILY
     Route: 048
     Dates: start: 20161230
  2. NORCO [Suspect]
     Active Substance: ACETAMINOPHEN\HYDROCODONE BITARTRATE
     Indication: BREAKTHROUGH PAIN
     Dosage: UNK (7.5/325MG), BID PRN
     Route: 048
     Dates: start: 2012

REACTIONS (6)
  - Drug ineffective [Not Recovered/Not Resolved]
  - Paraesthesia [Not Recovered/Not Resolved]
  - Insomnia [Not Recovered/Not Resolved]
  - Dyspnoea [Not Recovered/Not Resolved]
  - Hyperaesthesia [Not Recovered/Not Resolved]
  - Pain [Not Recovered/Not Resolved]
